FAERS Safety Report 4416711-8 (Version None)
Quarter: 2004Q3

REPORT INFORMATION
  Report Type: 
  Country: None (occurrence: None)
  Receive Date: 20040802
  Receipt Date: 20040721
  Transmission Date: 20050211
  Serious: Yes (Hospitalization, Other)
  Sender: FDA-Public Use
  Company Number: SUS1-2004-00425

PATIENT
  Age: 8 Year
  Sex: Female

DRUGS (2)
  1. ADDERALL 10 [Suspect]
     Indication: ATTENTION DEFICIT/HYPERACTIVITY DISORDER
     Dosage: 20 MG
     Dates: end: 20040707
  2. CATAPRES [Suspect]
     Indication: ATTENTION DEFICIT/HYPERACTIVITY DISORDER
     Dosage: 0.1 MG, 2X/DAY: BID
     Dates: end: 20040707

REACTIONS (4)
  - ELECTROCARDIOGRAM ABNORMAL [None]
  - OXYGEN SATURATION DECREASED [None]
  - PSYCHIATRIC SYMPTOM [None]
  - SKIN DISCOLOURATION [None]
